FAERS Safety Report 9526349 (Version 1)
Quarter: 2013Q3

REPORT INFORMATION
  Report Type: Spontaneous
  Country: FR (occurrence: FR)
  Receive Date: 20130916
  Receipt Date: 20130916
  Transmission Date: 20140515
  Serious: Yes (Other)
  Sender: FDA-Public Use
  Company Number: FR-BAYER-2013-108004

PATIENT
  Age: 80 Year
  Sex: Female

DRUGS (12)
  1. IZILOX [Suspect]
     Indication: ATYPICAL MYCOBACTERIAL INFECTION
     Dosage: 400 MG, QD
     Route: 048
     Dates: start: 201306, end: 20130715
  2. DEXAMBUTOL [Suspect]
     Indication: ATYPICAL MYCOBACTERIAL INFECTION
     Dosage: 1000 MG, QD
     Route: 048
     Dates: start: 20130124, end: 20130822
  3. ZECLAR [Suspect]
     Indication: ATYPICAL MYCOBACTERIAL INFECTION
     Dosage: 1000 MG, UNK
     Route: 048
     Dates: start: 20130124, end: 20130822
  4. ANSATIPINE [Suspect]
     Indication: ATYPICAL MYCOBACTERIAL INFECTION
     Dosage: 300 MG, UNK
     Route: 048
     Dates: start: 20130124, end: 201306
  5. ORENCIA [Suspect]
     Indication: RHEUMATOID ARTHRITIS
     Dosage: UNK
     Route: 042
     Dates: start: 2012
  6. RENITEC [Concomitant]
     Indication: HYPERTENSION
     Dosage: UNK
     Route: 048
  7. CORTANCYL [Concomitant]
  8. DIFFU K [Concomitant]
  9. DOLIPRANE [Concomitant]
  10. SOTALEX [Concomitant]
     Dosage: 80 MG, UNK
  11. CHONDROSULF [Concomitant]
     Dosage: 400 MG, UNK
  12. DIMETANE [BROMPHEN MAL,CODEINE PHOS,PHENYLPROPANOLAM HCL] [Concomitant]

REACTIONS (2)
  - Corneal deposits [Not Recovered/Not Resolved]
  - Vision blurred [Not Recovered/Not Resolved]
